FAERS Safety Report 9704856 (Version 1)
Quarter: 2013Q4

REPORT INFORMATION
  Report Type: Spontaneous
  Country: BE (occurrence: BE)
  Receive Date: 20131122
  Receipt Date: 20131122
  Transmission Date: 20140711
  Serious: Yes (Life-Threatening, Hospitalization, Other)
  Sender: FDA-Public Use
  Company Number: BE-BAYER-2013-140928

PATIENT
  Age: 61 Year
  Sex: Male

DRUGS (3)
  1. ACETYLSALICYLIC ACID({=100 MG) [Suspect]
     Dosage: 100 MG, QD
  2. ENOXAPARIN [Suspect]
     Indication: RENAL INFARCT
     Dosage: 80 MG, BID
  3. ENOXAPARIN [Suspect]
     Indication: SPLENIC INFARCTION

REACTIONS (7)
  - Atrial fibrillation [None]
  - Renal infarct [None]
  - Splenic infarction [Recovered/Resolved with Sequelae]
  - Splenic haematoma [Recovered/Resolved with Sequelae]
  - Splenic rupture [Recovered/Resolved with Sequelae]
  - Peritoneal haemorrhage [Recovered/Resolved]
  - Hypovolaemic shock [Recovered/Resolved]
